FAERS Safety Report 9714010 (Version 2)
Quarter: 2015Q3

REPORT INFORMATION
  Report Type: Spontaneous
  Country: US (occurrence: US)
  Receive Date: 20131126
  Receipt Date: 20150803
  Transmission Date: 20151125
  Serious: No
  Sender: FDA-Public Use
  Company Number: US-GILEAD-2008-0018551

PATIENT
  Age: 72 Year
  Sex: Female
  Weight: 107.5 kg

DRUGS (10)
  1. TYLENOL [Concomitant]
     Active Substance: ACETAMINOPHEN
  2. LETAIRIS [Suspect]
     Active Substance: AMBRISENTAN
     Indication: PULMONARY ARTERIAL HYPERTENSION
     Route: 048
     Dates: start: 20080929
  3. LASIX [Concomitant]
     Active Substance: FUROSEMIDE
  4. SYNTHROID [Concomitant]
     Active Substance: LEVOTHYROXINE SODIUM
  5. POTASSIUM CHLORIDE. [Concomitant]
     Active Substance: POTASSIUM CHLORIDE
  6. SERTRALINE [Concomitant]
     Active Substance: SERTRALINE HYDROCHLORIDE
  7. BROVANA 15MCG/ 2ML SOL [Concomitant]
  8. GLIPIZIDE. [Concomitant]
     Active Substance: GLIPIZIDE
  9. CARTIA XT [Concomitant]
     Active Substance: DILTIAZEM HYDROCHLORIDE
  10. IPRATROPIUM 0.02%/ NEB SOL [Concomitant]

REACTIONS (2)
  - Oedema peripheral [None]
  - Dyspnoea [None]
